FAERS Safety Report 25493694 (Version 1)
Quarter: 2025Q2

REPORT INFORMATION
  Report Type: Spontaneous
  Country: LT (occurrence: LT)
  Receive Date: 20250630
  Receipt Date: 20250630
  Transmission Date: 20250717
  Serious: Yes (Other)
  Sender: SANDOZ
  Company Number: LT-002147023-NVSC2025LT095255

PATIENT
  Age: 13 Year
  Sex: Female

DRUGS (12)
  1. CYCLOSPORINE [Suspect]
     Active Substance: CYCLOSPORINE
     Indication: Prophylaxis against graft versus host disease
     Route: 065
  2. METHOTREXATE [Suspect]
     Active Substance: METHOTREXATE
     Indication: Prophylaxis against graft versus host disease
     Route: 065
  3. MYCOPHENOLATE MOFETIL [Suspect]
     Active Substance: MYCOPHENOLATE MOFETIL
     Indication: Prophylaxis against graft versus host disease
     Route: 065
  4. CASPOFUNGIN [Concomitant]
     Active Substance: CASPOFUNGIN
     Indication: Systemic bacterial infection
     Route: 065
  5. CEFTAZIDIME [Concomitant]
     Active Substance: CEFTAZIDIME
     Indication: Febrile neutropenia
     Route: 065
  6. DIENOGEST [Concomitant]
     Active Substance: DIENOGEST
     Indication: Intermenstrual bleeding
     Route: 065
  7. ECULIZUMAB [Concomitant]
     Active Substance: ECULIZUMAB
     Indication: Thrombotic microangiopathy
     Route: 065
  8. ETHINYL ESTRADIOL [Concomitant]
     Active Substance: ETHINYL ESTRADIOL
     Indication: Intermenstrual bleeding
     Route: 065
  9. LEVETIRACETAM [Concomitant]
     Active Substance: LEVETIRACETAM
     Indication: Seizure
     Route: 065
  10. MEROPENEM [Concomitant]
     Active Substance: MEROPENEM
     Indication: Febrile neutropenia
     Route: 065
  11. MEROPENEM [Concomitant]
     Active Substance: MEROPENEM
     Indication: Systemic bacterial infection
  12. PIPERACILLIN AND TAZOBACTAM [Concomitant]
     Active Substance: PIPERACILLIN SODIUM\TAZOBACTAM SODIUM
     Indication: Febrile neutropenia
     Route: 065

REACTIONS (5)
  - Acute graft versus host disease [Unknown]
  - Graft versus host disease in gastrointestinal tract [Unknown]
  - Renal impairment [Unknown]
  - Vomiting [Unknown]
  - Decreased appetite [Unknown]
